FAERS Safety Report 17452454 (Version 1)
Quarter: 2020Q1

REPORT INFORMATION
  Report Type: Spontaneous
  Country: US (occurrence: US)
  Receive Date: 20200224
  Receipt Date: 20200224
  Transmission Date: 20200409
  Serious: No
  Sender: FDA-Public Use
  Company Number: US-HORIZON-PEN-VIM-0088-2020

PATIENT
  Age: 76 Year
  Sex: Female

DRUGS (3)
  1. VIMOVO [Suspect]
     Active Substance: ESOMEPRAZOLE MAGNESIUM\NAPROXEN
     Indication: OSTEOARTHRITIS
     Dosage: 1 TAB BID WITH FOOD OR 1 TAB QD
     Dates: start: 201911
  2. SYNTHROID [Concomitant]
     Active Substance: LEVOTHYROXINE SODIUM
  3. PENNSAID [Suspect]
     Active Substance: DICLOFENAC SODIUM
     Indication: POLYARTHRITIS
     Dosage: 2 PUMPS BID
     Dates: start: 201911

REACTIONS (4)
  - Arthralgia [Unknown]
  - Condition aggravated [Unknown]
  - Product prescribing issue [Unknown]
  - Off label use [Unknown]

NARRATIVE: CASE EVENT DATE: 201911
